FAERS Safety Report 5910636-4 (Version None)
Quarter: 2008Q4

REPORT INFORMATION
  Report Type: 
  Country: None (occurrence: None)
  Receive Date: 20081007
  Receipt Date: 20080926
  Transmission Date: 20090506
  Serious: Yes (Other)
  Sender: FDA-Public Use
  Company Number: GB-ASTRAZENECA-2008GB01852

PATIENT
  Age: 53 Year
  Sex: Female

DRUGS (1)
  1. SEROQUEL XR [Suspect]
     Dosage: 800 MG
     Route: 048

REACTIONS (2)
  - HIP FRACTURE [None]
  - ORTHOSTATIC HYPOTENSION [None]
